FAERS Safety Report 22320911 (Version 1)
Quarter: 2023Q2

REPORT INFORMATION
  Report Type: Other
  Country: JP (occurrence: JP)
  Receive Date: 20230515
  Receipt Date: 20230515
  Transmission Date: 20230722
  Serious: Yes (Hospitalization, Other)
  Sender: FDA-Public Use
  Company Number: JP-CHUGAI-2023016892

PATIENT
  Age: 61 Year
  Sex: Female

DRUGS (1)
  1. KADCYLA [Suspect]
     Active Substance: ADO-TRASTUZUMAB EMTANSINE
     Indication: Invasive ductal breast carcinoma
     Dosage: UNK
     Route: 041

REACTIONS (4)
  - Autoimmune thyroiditis [Unknown]
  - Paralysis recurrent laryngeal nerve [Unknown]
  - Epistaxis [Unknown]
  - Metastases to thyroid [Unknown]
